FAERS Safety Report 9501771 (Version 1)
Quarter: 2013Q1

REPORT INFORMATION
  Report Type: Spontaneous
  Country: US (occurrence: None)
  Receive Date: 20130107
  Receipt Date: 20130107
  Transmission Date: 20140127
  Serious: Yes (Hospitalization, Other)
  Sender: FDA-Public Use
  Company Number: PHEH2012US019053

PATIENT
  Age: 58 Year
  Sex: Female
  Weight: 112 kg

DRUGS (8)
  1. GILENYA (FTY) CAPSULE, 0.5MG [Suspect]
     Indication: MULTIPLE SCLEROSIS
     Dates: start: 201107, end: 20120915
  2. FLONASE (FLUTICASONE PROPIONATE) [Concomitant]
  3. VITAMIN D (ERGOCALCIFEROL) [Concomitant]
  4. ATORVASTATIN (ATORVASTATIN) [Concomitant]
  5. ASA (ACETYLSALICYLIC ACID) [Concomitant]
  6. THEOPHYLLINE (THEOPHYLLINE) [Concomitant]
  7. COMBACTAM (SULBACTAM SODIUM) [Concomitant]
  8. ZETIA (EZETIMIBE) [Concomitant]

REACTIONS (4)
  - Labyrinthitis [None]
  - Pneumonia [None]
  - Sinusitis [None]
  - Vertigo [None]
